FAERS Safety Report 19730626 (Version 10)
Quarter: 2022Q1

REPORT INFORMATION
  Report Type: Report from Study
  Country: US (occurrence: US)
  Receive Date: 20210820
  Receipt Date: 20220331
  Transmission Date: 20220423
  Serious: No
  Sender: FDA-Public Use
  Company Number: NVSC2021US187550

PATIENT
  Age: 82 Year
  Sex: Male

DRUGS (2)
  1. ENTRESTO [Suspect]
     Active Substance: SACUBITRIL\VALSARTAN
     Indication: Product used for unknown indication
     Dosage: UNK
     Route: 065
  2. LEXAPRO [Concomitant]
     Active Substance: ESCITALOPRAM OXALATE
     Indication: Product used for unknown indication
     Dosage: UNK
     Route: 065

REACTIONS (14)
  - Weight decreased [Unknown]
  - Balance disorder [Unknown]
  - Neck injury [Unknown]
  - Somnolence [Unknown]
  - Intervertebral disc protrusion [Unknown]
  - Arthralgia [Unknown]
  - Neck pain [Not Recovered/Not Resolved]
  - Anxiety [Unknown]
  - Laryngitis [Unknown]
  - Upper respiratory tract infection [Recovering/Resolving]
  - Feeling abnormal [Unknown]
  - Intervertebral disc degeneration [Unknown]
  - Hypotension [Unknown]
  - Tendonitis [Unknown]
